FAERS Safety Report 5842291-6 (Version None)
Quarter: 2008Q3

REPORT INFORMATION
  Report Type: 
  Country: None (occurrence: None)
  Receive Date: 20080812
  Receipt Date: 20080804
  Transmission Date: 20090109
  Serious: Yes (Hospitalization)
  Sender: FDA-Public Use
  Company Number: MX-SANOFI-SYNTHELABO-A01200809266

PATIENT
  Sex: Male

DRUGS (3)
  1. TAXOTERE [Concomitant]
     Indication: GASTRIC CANCER
     Dosage: 120 MG
     Route: 042
     Dates: start: 20080718, end: 20080718
  2. ELOXATIN [Suspect]
     Indication: GASTRIC CANCER
     Dosage: 150 MG
     Route: 042
     Dates: start: 20080718, end: 20080718
  3. UNICIT [Concomitant]
     Indication: NAUSEA
     Dosage: 0.25 MG
     Route: 042
     Dates: start: 20080718, end: 20080718

REACTIONS (3)
  - ATRIOVENTRICULAR BLOCK [None]
  - HEART RATE DECREASED [None]
  - PRESYNCOPE [None]
